FAERS Safety Report 9674565 (Version 2)
Quarter: 2014Q1

REPORT INFORMATION
  Report Type: Other
  Country: FR (occurrence: FR)
  Receive Date: 20131107
  Receipt Date: 20140226
  Transmission Date: 20141002
  Serious: Yes (Other)
  Sender: FDA-Public Use
  Company Number: FR-SUN PHARMACEUTICAL INDUSTRIES LTD-2013SUN04954

PATIENT
  Sex: 0

DRUGS (14)
  1. CARBOPLATINE SUN 10 MG/ML SOLUTION ? DILUER POUR PERFUSION [Suspect]
     Indication: CHEMOTHERAPY
     Dosage: 300 MG
     Route: 065
     Dates: start: 20130522
  2. MABTHERA [Suspect]
     Indication: CHEMOTHERAPY
     Dosage: 600 MG
     Route: 065
     Dates: start: 20130522
  3. ARACYTINE [Suspect]
     Indication: CHEMOTHERAPY
     Dosage: 2000 MG, UNK
     Route: 065
     Dates: start: 20130522
  4. PREDNISOLONE-MYLAN [Suspect]
     Dosage: UNK
     Route: 065
     Dates: start: 20130522
  5. BACTRIM [Suspect]
     Indication: PROPHYLAXIS
     Dosage: UNK
     Route: 065
     Dates: start: 20130522
  6. ZELITREX [Suspect]
     Indication: PROPHYLAXIS
     Dosage: UNK
     Route: 065
     Dates: start: 20130522
  7. CORTANCYL [Concomitant]
     Dosage: 60 MG, UNK
     Route: 065
     Dates: start: 20130522
  8. DOMPERIDONE [Concomitant]
     Indication: PROPHYLAXIS
     Dosage: UNK
     Route: 065
     Dates: start: 20130522, end: 20130927
  9. DOMPERIDONE [Concomitant]
     Dosage: AS PER NEED
     Route: 065
  10. GRANULOCYTE COLONY-STIMULATING FACTOR NOS [Concomitant]
     Indication: PROPHYLAXIS
     Dosage: UNK
     Route: 065
     Dates: start: 20130522
  11. MOVICOL [Concomitant]
     Dosage: 1 OR 2 SACHETS/DAY
     Route: 065
     Dates: start: 20130612
  12. ERYTHROPOIETIN [Concomitant]
     Dosage: UNK
     Route: 065
     Dates: start: 20130712
  13. FOLIC ACID [Concomitant]
     Dosage: UNK
     Route: 065
     Dates: start: 20130712
  14. ZYLORIC [Concomitant]
     Indication: PROPHYLAXIS
     Dosage: 300 MG/DAY
     Route: 065
     Dates: start: 20130522

REACTIONS (1)
  - Parkinsonism [Not Recovered/Not Resolved]
